FAERS Safety Report 14707835 (Version 2)
Quarter: 2019Q1

REPORT INFORMATION
  Report Type: Spontaneous
  Country: ES (occurrence: ES)
  Receive Date: 20180403
  Receipt Date: 20190219
  Transmission Date: 20190417
  Serious: Yes (Hospitalization)
  Sender: FDA-Public Use
  Company Number: PHHY2018ES057441

PATIENT
  Age: 80 Year
  Sex: Female

DRUGS (4)
  1. ALLOPURINOL. [Suspect]
     Active Substance: ALLOPURINOL
     Indication: HYPERURICAEMIA
     Dosage: 300 MG, QD
     Route: 048
     Dates: start: 20170505, end: 20170606
  2. ACICLOVIR [Suspect]
     Active Substance: ACYCLOVIR
     Indication: ANTIVIRAL PROPHYLAXIS
     Dosage: 800 MG, QD
     Route: 048
     Dates: start: 20170517, end: 20170606
  3. TRIMETOPRIMA [Suspect]
     Active Substance: TRIMETHOPRIM
     Indication: ANTIVIRAL PROPHYLAXIS
     Dosage: 160 MG, UNK (12HORAS S?BADOS Y DOMINGOS)
     Route: 048
     Dates: start: 20170526, end: 20170605
  4. LENALIDOMIDE [Suspect]
     Active Substance: LENALIDOMIDE
     Indication: PLASMA CELL MYELOMA
     Dosage: 25 MG, QD (25MG CADA 24 HORAS (21 D?AS))
     Route: 048
     Dates: start: 20170517, end: 20170606

REACTIONS (3)
  - Drug reaction with eosinophilia and systemic symptoms [Recovered/Resolved]
  - Hepatitis [Recovered/Resolved]
  - Renal failure [Recovered/Resolved]

NARRATIVE: CASE EVENT DATE: 20170530
